FAERS Safety Report 7441139-6 (Version None)
Quarter: 2011Q2

REPORT INFORMATION
  Report Type: 
  Country: None (occurrence: None)
  Receive Date: 20110428
  Receipt Date: 20110419
  Transmission Date: 20111010
  Serious: Yes (Hospitalization)
  Sender: FDA-Public Use
  Company Number: US-BIOGENIDEC-2011BI001108

PATIENT
  Sex: Male

DRUGS (4)
  1. TYSABRI [Suspect]
     Indication: MULTIPLE SCLEROSIS
     Route: 042
     Dates: start: 20070717
  2. ASPIRIN [Concomitant]
  3. TYSABRI [Suspect]
     Route: 042
     Dates: start: 20050215
  4. PLAVIX [Concomitant]

REACTIONS (3)
  - FALL [None]
  - SCOLIOSIS [None]
  - BLOOD COUNT ABNORMAL [None]
